FAERS Safety Report 4498445-7 (Version None)
Quarter: 2004Q4

REPORT INFORMATION
  Report Type: 
  Country: None (occurrence: None)
  Receive Date: 20041105
  Receipt Date: 20041022
  Transmission Date: 20050328
  Serious: Yes (Hospitalization)
  Sender: FDA-Public Use
  Company Number: 2004-0007664

PATIENT
  Age: 40 Year
  Sex: Male
  Weight: 67 kg

DRUGS (15)
  1. VIREAD [Suspect]
     Indication: HIV INFECTION
     Dosage: SEE IMAGE
     Route: 048
     Dates: end: 20040801
  2. VIREAD [Suspect]
     Indication: HIV INFECTION
     Dosage: SEE IMAGE
     Route: 048
     Dates: start: 20040802, end: 20040802
  3. VIREAD [Suspect]
     Indication: HIV INFECTION
     Dosage: SEE IMAGE
     Route: 048
     Dates: start: 20040803
  4. STOCRIN (EFAVIRENZ) [Suspect]
     Indication: HIV INFECTION
     Dosage: SEE IMAGE
     Route: 048
     Dates: end: 20040801
  5. STOCRIN (EFAVIRENZ) [Suspect]
     Indication: HIV INFECTION
     Dosage: SEE IMAGE
     Route: 048
     Dates: start: 20040802, end: 20040802
  6. STOCRIN (EFAVIRENZ) [Suspect]
     Indication: HIV INFECTION
     Dosage: SEE IMAGE
     Route: 048
     Dates: start: 20040803
  7. FLUOXETINE HCL [Suspect]
     Dosage: SEE IMAGE
     Route: 048
     Dates: end: 20040801
  8. FLUOXETINE HCL [Suspect]
     Dosage: SEE IMAGE
     Route: 048
     Dates: start: 20040802, end: 20040802
  9. TRIZIVIR [Suspect]
     Indication: HIV INFECTION
     Dosage: SEE IMAGE
     Route: 048
     Dates: end: 20040801
  10. TRIZIVIR [Suspect]
     Indication: PORTAL VEIN THROMBOSIS
     Dosage: SEE IMAGE
     Route: 048
     Dates: end: 20040801
  11. TRIZIVIR [Suspect]
     Indication: HIV INFECTION
     Dosage: SEE IMAGE
     Route: 048
     Dates: start: 20040802, end: 20040802
  12. TRIZIVIR [Suspect]
     Indication: PORTAL VEIN THROMBOSIS
     Dosage: SEE IMAGE
     Route: 048
     Dates: start: 20040802, end: 20040802
  13. TRIZIVIR [Suspect]
     Indication: HIV INFECTION
     Dosage: SEE IMAGE
     Route: 048
     Dates: start: 20040803
  14. TRIZIVIR [Suspect]
     Indication: PORTAL VEIN THROMBOSIS
     Dosage: SEE IMAGE
     Route: 048
     Dates: start: 20040803
  15. MARCUMAR [Concomitant]

REACTIONS (8)
  - ATAXIA [None]
  - DIARRHOEA [None]
  - DIPLOPIA [None]
  - FATIGUE [None]
  - MULTIPLE DRUG OVERDOSE INTENTIONAL [None]
  - SOMNOLENCE [None]
  - SUICIDE ATTEMPT [None]
  - VOMITING [None]
